FAERS Safety Report 21562812 (Version 1)
Quarter: 2022Q4

REPORT INFORMATION
  Report Type: Spontaneous
  Country: US (occurrence: None)
  Receive Date: 20221104
  Receipt Date: 20221104
  Transmission Date: 20230112
  Serious: Yes (Hospitalization)
  Sender: FDA-Public Use
  Company Number: None

PATIENT
  Age: 61 Year
  Sex: Female

DRUGS (1)
  1. PLEGRIDY [Suspect]
     Active Substance: PEGINTERFERON BETA-1A
     Indication: Multiple sclerosis
     Dosage: 125MCG: EVERY 14 DAYS SQ?
     Route: 058
     Dates: start: 20220211

REACTIONS (1)
  - Epigastric discomfort [None]

NARRATIVE: CASE EVENT DATE: 20221028
